FAERS Safety Report 13580396 (Version 3)
Quarter: 2017Q4

REPORT INFORMATION
  Report Type: Report from Study
  Country: None (occurrence: US)
  Receive Date: 20170525
  Receipt Date: 20171103
  Transmission Date: 20180320
  Serious: Yes (Other)
  Sender: FDA-Public Use
  Company Number: US-ABBVIE-17K-163-1860401-00

PATIENT
  Sex: Female
  Weight: 89.89 kg

DRUGS (1)
  1. HUMIRA [Suspect]
     Active Substance: ADALIMUMAB
     Indication: RHEUMATOID ARTHRITIS
     Route: 058
     Dates: start: 2014

REACTIONS (1)
  - Arthralgia [Not Recovered/Not Resolved]
